FAERS Safety Report 5301248-4 (Version None)
Quarter: 2007Q2

REPORT INFORMATION
  Report Type: 
  Country: None (occurrence: None)
  Receive Date: 20070418
  Receipt Date: 20070410
  Transmission Date: 20071010
  Serious: Yes (Hospitalization, Other)
  Sender: FDA-Public Use
  Company Number: PH-PFIZER INC-2007029489

PATIENT
  Age: 56 Year
  Sex: Female

DRUGS (2)
  1. NEURONTIN [Suspect]
     Route: 048
  2. ARCOXIA [Interacting]

REACTIONS (2)
  - DRUG INTERACTION [None]
  - HYPERTENSION [None]
